FAERS Safety Report 15919105 (Version 1)
Quarter: 2019Q1

REPORT INFORMATION
  Report Type: Spontaneous
  Country: ES (occurrence: ES)
  Receive Date: 20190205
  Receipt Date: 20190205
  Transmission Date: 20190417
  Serious: Yes (Death, Other)
  Sender: FDA-Public Use
  Company Number: ES-MYLANLABS-2019M1008876

PATIENT
  Age: 19 Month
  Sex: Female

DRUGS (2)
  1. ISONIAZID. [Suspect]
     Active Substance: ISONIAZID
     Indication: TUBERCULOSIS
     Dosage: UNK
  2. RIFAMPICIN [Suspect]
     Active Substance: RIFAMPIN
     Indication: TUBERCULOSIS
     Dosage: UNK

REACTIONS (3)
  - Cholestasis [Fatal]
  - Drug-induced liver injury [Fatal]
  - Hepatotoxicity [Fatal]
